FAERS Safety Report 6647575-X (Version None)
Quarter: 2010Q1

REPORT INFORMATION
  Report Type: 
  Country: None (occurrence: None)
  Receive Date: 20100323
  Receipt Date: 20100310
  Transmission Date: 20100710
  Serious: Yes (Hospitalization)
  Sender: FDA-Public Use
  Company Number: FR-AMGEN-US399728

PATIENT
  Sex: Male

DRUGS (5)
  1. ENBREL [Suspect]
     Indication: ANKYLOSING SPONDYLITIS
     Route: 058
     Dates: start: 20091127, end: 20100120
  2. ENBREL [Suspect]
     Route: 058
     Dates: start: 20100126, end: 20100206
  3. ACETAMINOPHEN W/ PROPOXYPHENE HCL [Concomitant]
  4. OMEPRAZOLE [Concomitant]
  5. BI-PROFENID [Concomitant]

REACTIONS (4)
  - DELUSION [None]
  - HEPATITIS A [None]
  - NASOPHARYNGITIS [None]
  - PROTHROMBIN TIME PROLONGED [None]
